FAERS Safety Report 9642724 (Version 1)
Quarter: 2013Q4

REPORT INFORMATION
  Report Type: Spontaneous
  Country: IT (occurrence: IT)
  Receive Date: 20131024
  Receipt Date: 20131024
  Transmission Date: 20140711
  Serious: Yes (Other)
  Sender: FDA-Public Use
  Company Number: IT-SA-2013SA104107

PATIENT
  Age: 70 Year
  Sex: Female

DRUGS (8)
  1. LANTUS [Suspect]
     Indication: DIABETES MELLITUS
     Route: 058
     Dates: start: 20130101, end: 20130906
  2. HUMALOG [Suspect]
     Indication: DIABETES MELLITUS
     Route: 058
     Dates: start: 20130101, end: 20130906
  3. AMLODIPINE [Concomitant]
     Route: 048
  4. BISOPROLOL HEMIFUMARATE [Concomitant]
     Route: 048
  5. PANTOPRAZOLE [Concomitant]
     Route: 048
  6. CARDIOASPIRIN [Concomitant]
     Dosage: STRENGTH: 100 MG DOSE:1 UNIT(S)
     Route: 048
  7. EUTIROX [Concomitant]
     Dosage: STRENGTH: 100 MCG DOSE:1 UNIT(S)
     Route: 048
  8. CRESTOR [Concomitant]
     Dosage: STRENGTH: 10 MG DOSE:1 UNIT(S)
     Route: 048

REACTIONS (3)
  - Infarction [Recovering/Resolving]
  - Injury [Recovering/Resolving]
  - Hypoglycaemia [Recovering/Resolving]
